FAERS Safety Report 6383018-1 (Version None)
Quarter: 2009Q3

REPORT INFORMATION
  Report Type: 
  Country: None (occurrence: None)
  Receive Date: 20090930
  Receipt Date: 20090519
  Transmission Date: 20100115
  Serious: Yes (Other)
  Sender: FDA-Public Use
  Company Number: BR-PFIZER INC-2009215338

PATIENT
  Age: 83 Year

DRUGS (4)
  1. AROMASIN [Suspect]
     Indication: OFF LABEL USE
     Dosage: UNK
     Route: 048
  2. AROMASIN [Suspect]
     Indication: BONE NEOPLASM
  3. LEXOTAN [Concomitant]
     Dosage: UNK
  4. CALTREN [Concomitant]
     Dosage: UNK
     Dates: end: 20090501

REACTIONS (1)
  - POLYURIA [None]
